FAERS Safety Report 17192431 (Version 1)
Quarter: 2019Q4

REPORT INFORMATION
  Report Type: Spontaneous
  Country: US (occurrence: US)
  Receive Date: 20191223
  Receipt Date: 20191223
  Transmission Date: 20200122
  Serious: No
  Sender: FDA-Public Use
  Company Number: US-INCYTE CORPORATION-2017IN010867

PATIENT

DRUGS (3)
  1. JAKAFI [Suspect]
     Active Substance: RUXOLITINIB
     Dosage: 5 MILLIGRAM (ONCE EVERY MONDAY AND THURSDAY)
     Route: 048
  2. JAKAFI [Suspect]
     Active Substance: RUXOLITINIB
     Indication: POLYCYTHAEMIA VERA
     Dosage: 5 MG, QD
     Route: 048
     Dates: start: 20150305
  3. JAKAFI [Suspect]
     Active Substance: RUXOLITINIB
     Dosage: THREE TIMES WEEKLY
     Route: 048

REACTIONS (1)
  - Anaemia [Not Recovered/Not Resolved]
